FAERS Safety Report 22301788 (Version 1)
Quarter: 2023Q2

REPORT INFORMATION
  Report Type: Spontaneous
  Country: US (occurrence: US)
  Receive Date: 20230510
  Receipt Date: 20230510
  Transmission Date: 20230722
  Serious: Yes (Hospitalization)
  Sender: FDA-Public Use
  Company Number: US-Orient Pharma-000151

PATIENT
  Age: 66 Year
  Sex: Male

DRUGS (8)
  1. VANCOMYCIN HYDROCHLORIDE [Suspect]
     Active Substance: VANCOMYCIN HYDROCHLORIDE
     Indication: Clostridium difficile infection
     Route: 048
  2. APIXABAN [Concomitant]
     Active Substance: APIXABAN
     Indication: Deep vein thrombosis
  3. SODIUM CHLORIDE [Concomitant]
     Active Substance: SODIUM CHLORIDE
     Dosage: 3 L TOTAL OF 0.9% SODIUM CHLORIDE FLUID BOLUS
  4. SODIUM BICARBONATE [Concomitant]
     Active Substance: SODIUM BICARBONATE
     Dosage: 300 MEQ IV BOLUS
  5. THIAMINE [Concomitant]
     Active Substance: THIAMINE
  6. FOLATE SODIUM [Concomitant]
     Active Substance: FOLATE SODIUM
  7. SODIUM CHLORIDE [Concomitant]
     Active Substance: SODIUM CHLORIDE
     Dosage: MAINTENANCE IV FLUIDS OF 0.45% SODIUM?CHLORIDE
  8. SODIUM BICARBONATE [Concomitant]
     Active Substance: SODIUM BICARBONATE
     Dosage: FOLLOWED VIA A BICARBONATE DRIP (150 MEQ OF BICARBONATE IN 1 L OF FREE WATER AT 250 ML/H)

REACTIONS (2)
  - Rash maculo-papular [Recovered/Resolved]
  - Leukocytosis [Recovered/Resolved]
